FAERS Safety Report 16466194 (Version 2)
Quarter: 2019Q4

REPORT INFORMATION
  Report Type: Other
  Country: US (occurrence: US)
  Receive Date: 20190621
  Receipt Date: 20191222
  Transmission Date: 20200122
  Serious: No
  Sender: FDA-Public Use
  Company Number: US-ACORDA-ACO_158961_2019

PATIENT
  Age: 52 Year
  Sex: Male

DRUGS (3)
  1. INBRIJA [Suspect]
     Active Substance: LEVODOPA
     Dosage: 84 MILLIGRAM (2 CAPSULES OF 42MG) AS NEEDED
  2. CARBIDOPA/LEVODOPA [Concomitant]
     Active Substance: CARBIDOPA\LEVODOPA
     Indication: PRODUCT USED FOR UNKNOWN INDICATION
     Dosage: UNK
     Route: 065
  3. INBRIJA [Suspect]
     Active Substance: LEVODOPA
     Indication: PARKINSON^S DISEASE
     Dosage: 42 MILLIGRAM, UNK
     Dates: start: 20190416

REACTIONS (5)
  - Fall [Unknown]
  - Therapy cessation [Unknown]
  - Product use issue [Unknown]
  - Drug ineffective [Unknown]
  - Hypoacusis [Unknown]

NARRATIVE: CASE EVENT DATE: 201905
